FAERS Safety Report 19653161 (Version 1)
Quarter: 2021Q3

REPORT INFORMATION
  Report Type: Spontaneous
  Country: AU (occurrence: AU)
  Receive Date: 20210803
  Receipt Date: 20210803
  Transmission Date: 20211014
  Serious: Yes (Other)
  Sender: FDA-Public Use
  Company Number: AU-PFIZER INC-2021816633

PATIENT
  Age: 64 Year
  Sex: Female

DRUGS (1)
  1. CHAMPIX [Suspect]
     Active Substance: VARENICLINE TARTRATE
     Dosage: UNK, 2X/DAY

REACTIONS (14)
  - Nausea [Unknown]
  - Muscle tightness [Unknown]
  - Head titubation [Unknown]
  - Tremor [Unknown]
  - Insomnia [Unknown]
  - Lethargy [Unknown]
  - Depression [Recovering/Resolving]
  - Malaise [Unknown]
  - Confusional state [Unknown]
  - Product dose omission issue [Unknown]
  - Dystonia [Unknown]
  - Neck pain [Unknown]
  - Pain [Unknown]
  - Nervousness [Unknown]
